FAERS Safety Report 7860511-3 (Version None)
Quarter: 2011Q4

REPORT INFORMATION
  Report Type: 
  Country: None (occurrence: None)
  Receive Date: 20111027
  Receipt Date: 20111024
  Transmission Date: 20120403
  Serious: Yes (Other)
  Sender: FDA-Public Use
  Company Number: US-PFIZER INC-2011259846

PATIENT
  Sex: Male
  Weight: 71 kg

DRUGS (21)
  1. CATAPRES [Concomitant]
  2. JANUVIA [Concomitant]
  3. CYCLOSPORINE [Concomitant]
     Dosage: UNK
     Dates: end: 20070130
  4. PROGRAF [Concomitant]
     Indication: HEART TRANSPLANT
     Dosage: 2 MG, 2X/DAY
     Route: 048
     Dates: start: 20070131, end: 20100804
  5. RITUXIMAB [Concomitant]
  6. FEOSOL [Concomitant]
  7. MYCOPHENOLATE MOFETIL (CELLCEPT) [Concomitant]
  8. SODIUM BICARBONATE [Concomitant]
  9. FOSAMAX [Concomitant]
  10. PEPCID [Concomitant]
  11. PRILOSEC [Concomitant]
  12. PROGRAF [Concomitant]
     Dosage: 1.5 MG, 2X/DAY
     Route: 048
     Dates: start: 20100805, end: 20100908
  13. PROGRAF [Concomitant]
     Dosage: 1 MG, 2X/DAY
     Route: 048
     Dates: start: 20100909, end: 20101006
  14. DELTASONE [Concomitant]
  15. MULTI-VITAMINS [Concomitant]
  16. AMIODARONE HCL [Suspect]
     Dosage: UNK
  17. PRAVACHOL [Concomitant]
  18. PREDNISONE [Concomitant]
  19. EPOGEN [Concomitant]
  20. CALCIUM [Concomitant]
  21. SIROLIMUS [Concomitant]

REACTIONS (1)
  - HYPOTHYROIDISM [None]
